FAERS Safety Report 25648417 (Version 1)
Quarter: 2025Q3

REPORT INFORMATION
  Report Type: Spontaneous
  Country: EU (occurrence: EU)
  Receive Date: 20250806
  Receipt Date: 20250806
  Transmission Date: 20251021
  Serious: Yes (Other)
  Sender: ORGANON
  Company Number: EU-ORGANON-O2508DEU000227

PATIENT
  Age: 58 Year
  Sex: Female

DRUGS (1)
  1. EBASTINE [Suspect]
     Active Substance: EBASTINE
     Dosage: 1 DOSAGE FORM, TID
     Route: 048

REACTIONS (3)
  - Liver function test increased [Unknown]
  - Smooth muscle antibody positive [Unknown]
  - Prescribed overdose [Unknown]
